FAERS Safety Report 22948010 (Version 2)
Quarter: 2023Q4

REPORT INFORMATION
  Report Type: Spontaneous
  Country: US (occurrence: US)
  Receive Date: 20230915
  Receipt Date: 20231009
  Transmission Date: 20240110
  Serious: Yes (Other)
  Sender: FDA-Public Use
  Company Number: US-ORGANON-O2309USA002028

PATIENT
  Sex: Female
  Weight: 153.74 kg

DRUGS (1)
  1. NEXPLANON [Suspect]
     Active Substance: ETONOGESTREL
     Indication: Contraception
     Dosage: 1 IMPLANT FOR 5 YEARS IN LEFT NON-DOMINANT ARM
     Route: 059
     Dates: start: 2018, end: 20220623

REACTIONS (5)
  - Pregnancy with implant contraceptive [Recovered/Resolved]
  - Gestational hypertension [Unknown]
  - Unintended pregnancy [Recovered/Resolved]
  - Incorrect product administration duration [Unknown]
  - Product prescribing issue [Unknown]

NARRATIVE: CASE EVENT DATE: 20180101
